FAERS Safety Report 21238858 (Version 1)
Quarter: 2022Q3

REPORT INFORMATION
  Report Type: Spontaneous
  Country: HU (occurrence: HU)
  Receive Date: 20220822
  Receipt Date: 20220822
  Transmission Date: 20221027
  Serious: Yes (Hospitalization, Other)
  Sender: FDA-Public Use
  Company Number: HU-ABBVIE-22K-076-4511442-00

PATIENT
  Sex: Male

DRUGS (2)
  1. VENETOCLAX [Suspect]
     Active Substance: VENETOCLAX
     Indication: Chronic lymphocytic leukaemia
     Route: 048
     Dates: start: 20180619
  2. RITUXIMAB [Concomitant]
     Active Substance: RITUXIMAB
     Indication: Chronic lymphocytic leukaemia
     Dates: start: 20180619

REACTIONS (5)
  - COVID-19 pneumonia [Unknown]
  - Respiratory disorder [Unknown]
  - Lung opacity [Unknown]
  - Pulmonary embolism [Unknown]
  - Pyrexia [Unknown]

NARRATIVE: CASE EVENT DATE: 20210920
